FAERS Safety Report 8603056-5 (Version None)
Quarter: 2012Q3

REPORT INFORMATION
  Report Type: 
  Country: None (occurrence: None)
  Receive Date: 20120817
  Receipt Date: 20120713
  Transmission Date: 20120928
  Serious: No
  Sender: FDA-Public Use
  Company Number: US-GLAXOSMITHKLINE-A0984452A

PATIENT
  Age: 55 Year
  Sex: Male

DRUGS (2)
  1. OTHER MEDICATIONS [Concomitant]
  2. VOTRIENT [Suspect]
     Indication: RENAL CELL CARCINOMA
     Dosage: 1TAB TWICE PER DAY
     Route: 048
     Dates: start: 20101001, end: 20120713

REACTIONS (1)
  - DRUG INEFFECTIVE [None]
